FAERS Safety Report 6571329-6 (Version None)
Quarter: 2010Q1

REPORT INFORMATION
  Report Type: 
  Country: None (occurrence: None)
  Receive Date: 20100205
  Receipt Date: 20100129
  Transmission Date: 20100710
  Serious: Yes (Other)
  Sender: FDA-Public Use
  Company Number: US-BRISTOL-MYERS SQUIBB COMPANY-14956114

PATIENT
  Age: 87 Year
  Sex: Female
  Weight: 53 kg

DRUGS (6)
  1. ONGLYZA [Suspect]
     Indication: TYPE 2 DIABETES MELLITUS
  2. TRIAZOLAM [Concomitant]
  3. NEXIUM [Concomitant]
  4. PANCREASE [Concomitant]
  5. BYSTOLIC [Concomitant]
  6. SENNA-LAX [Concomitant]

REACTIONS (1)
  - PANCREATITIS ACUTE [None]
